FAERS Safety Report 5777815-0 (Version None)
Quarter: 2008Q2

REPORT INFORMATION
  Report Type: 
  Country: None (occurrence: None)
  Receive Date: 20080618
  Receipt Date: 20080610
  Transmission Date: 20081010
  Serious: Yes (Disabling, Other)
  Sender: FDA-Public Use
  Company Number: BR-PFIZER INC-2008049908

PATIENT
  Sex: Male
  Weight: 78 kg

DRUGS (2)
  1. FRONTAL XR [Suspect]
     Indication: PANIC REACTION
     Route: 048
  2. FLUOXETINE [Suspect]

REACTIONS (11)
  - ABDOMINAL DISTENSION [None]
  - BLOOD PRESSURE INCREASED [None]
  - BLOOD TRIGLYCERIDES INCREASED [None]
  - DYSSTASIA [None]
  - FATIGUE [None]
  - IMPAIRED DRIVING ABILITY [None]
  - MUSCLE TIGHTNESS [None]
  - PANIC REACTION [None]
  - SENSORY DISTURBANCE [None]
  - VERTIGO [None]
  - WEIGHT DECREASED [None]
